FAERS Safety Report 13961689 (Version 3)
Quarter: 2017Q4

REPORT INFORMATION
  Report Type: Spontaneous
  Country: CN (occurrence: CN)
  Receive Date: 20170912
  Receipt Date: 20171003
  Transmission Date: 20180320
  Serious: Yes (Other)
  Sender: FDA-Public Use
  Company Number: CN-009507513-1709CHN004739

PATIENT
  Age: 46 Year
  Sex: Female
  Weight: 65 kg

DRUGS (4)
  1. THEOPHYLLINE [Concomitant]
     Active Substance: THEOPHYLLINE ANHYDROUS
     Indication: COUGH
     Dosage: 0.1 G, BID
     Route: 048
     Dates: start: 20170627, end: 20170628
  2. PREDNISONE. [Concomitant]
     Active Substance: PREDNISONE
     Indication: BRONCHIAL HYPERREACTIVITY
     Dosage: 15 MG, QD
     Route: 048
     Dates: start: 20170627, end: 20170628
  3. MONTELUKAST SODIUM. [Suspect]
     Active Substance: MONTELUKAST SODIUM
     Indication: BRONCHIAL HYPERREACTIVITY
     Dosage: 10 MG, QD
     Route: 048
     Dates: start: 20170627, end: 20170628
  4. LORATADINE. [Suspect]
     Active Substance: LORATADINE
     Indication: BRONCHIAL HYPERREACTIVITY
     Dosage: 10 MG, QD
     Route: 048
     Dates: start: 20170627, end: 20170628

REACTIONS (2)
  - Pruritus [Not Recovered/Not Resolved]
  - Papule [Not Recovered/Not Resolved]

NARRATIVE: CASE EVENT DATE: 20170627
